FAERS Safety Report 19209614 (Version 6)
Quarter: 2021Q4

REPORT INFORMATION
  Report Type: Report from Study
  Country: KR (occurrence: None)
  Receive Date: 20210504
  Receipt Date: 20211224
  Transmission Date: 20220303
  Serious: Yes (Hospitalization)
  Sender: FDA-Public Use
  Company Number: KR-ROCHE-2818356

PATIENT
  Age: 66 Year
  Sex: Male
  Weight: 59.2 kg

DRUGS (43)
  1. MOSUNETUZUMAB [Suspect]
     Active Substance: MOSUNETUZUMAB
     Indication: B-cell lymphoma
     Dosage: ON 21/APR/2021 HE RECEIVED MOST RECENT DOSE OF MOSUNETUZUMAB PRIOR TO AE
     Route: 042
     Dates: start: 20210421
  2. POLATUZUMAB VEDOTIN [Suspect]
     Active Substance: POLATUZUMAB VEDOTIN
     Indication: B-cell lymphoma
     Dosage: ON 21/APR/2021 HE RECEIVED MOST RECENT DOSE OF POLATUZUMAB VEDOTIN PRIOR TO AE
     Route: 042
     Dates: start: 20210421
  3. CYCLOPHOSPHAMIDE [Suspect]
     Active Substance: CYCLOPHOSPHAMIDE
     Indication: B-cell lymphoma
     Dosage: ON 21/APR/2021 HE RECEIVED MOST RECENT DOSE OF CYCLOPHOSPHAMIDE  PRIOR TO AE
     Route: 042
     Dates: start: 20210421
  4. DOXORUBICIN [Suspect]
     Active Substance: DOXORUBICIN
     Indication: B-cell lymphoma
     Dosage: ON 21/APR/2021 HE RECEIVED MOST RECENT DOSE OF DOXORUBICIN PRIOR TO AE
     Route: 042
     Dates: start: 20210421
  5. PREDNISONE [Suspect]
     Active Substance: PREDNISONE
     Indication: B-cell lymphoma
     Dosage: ON 21/APR/2021 HE RECEIVED MOST RECENT DOSE OF PREDNISOLONE PRIOR TO AE?ON 25/APR/2021, RECEIVED MOS
     Route: 048
     Dates: start: 20210421
  6. PYRIDOXINE [Concomitant]
     Active Substance: PYRIDOXINE
     Route: 048
     Dates: start: 20210331, end: 20210630
  7. TUBES2 [Concomitant]
     Dosage: 2 TABLET
     Route: 048
     Dates: start: 20210331, end: 20210630
  8. DICAMAX D PLUS [Concomitant]
     Dosage: 1 TABLET
     Route: 048
     Dates: start: 20210330
  9. LIPITOR [Concomitant]
     Active Substance: ATORVASTATIN CALCIUM
     Route: 048
  10. GASTER (SOUTH KOREA) [Concomitant]
     Route: 048
     Dates: start: 20210415, end: 20210425
  11. ALLOPURINOL [Concomitant]
     Active Substance: ALLOPURINOL
     Dosage: 300 TABLET
     Dates: start: 20210418, end: 20210423
  12. SULFAMETHOXAZOLE\TRIMETHOPRIM [Concomitant]
     Active Substance: SULFAMETHOXAZOLE\TRIMETHOPRIM
     Dosage: 1 TABLET
     Route: 048
     Dates: start: 20210421, end: 20210929
  13. PENIRAMIN [Concomitant]
     Route: 042
     Dates: start: 20210421, end: 20210421
  14. PENIRAMIN [Concomitant]
     Route: 042
     Dates: start: 20210505, end: 20210505
  15. ACETAMINOPHEN [Concomitant]
     Active Substance: ACETAMINOPHEN
     Route: 048
     Dates: start: 20210421, end: 20210421
  16. ACETAMINOPHEN [Concomitant]
     Active Substance: ACETAMINOPHEN
     Route: 048
     Dates: start: 20210422, end: 20210422
  17. ACETAMINOPHEN [Concomitant]
     Active Substance: ACETAMINOPHEN
     Route: 048
     Dates: start: 20210423, end: 20210423
  18. ACETAMINOPHEN [Concomitant]
     Active Substance: ACETAMINOPHEN
     Route: 048
     Dates: start: 20210428, end: 20210428
  19. ACETAMINOPHEN [Concomitant]
     Active Substance: ACETAMINOPHEN
     Route: 048
     Dates: start: 20210429, end: 20210429
  20. ACETAMINOPHEN [Concomitant]
     Active Substance: ACETAMINOPHEN
     Route: 048
     Dates: start: 20210502, end: 20210502
  21. ACETAMINOPHEN [Concomitant]
     Active Substance: ACETAMINOPHEN
     Route: 048
     Dates: start: 20210503, end: 20210504
  22. AKYNZEO [Concomitant]
     Active Substance: NETUPITANT\PALONOSETRON HYDROCHLORIDE
     Dosage: 1 CAPSULE
     Route: 048
     Dates: start: 20210421, end: 20210421
  23. ACETPHEN PREMIX [Concomitant]
     Route: 042
     Dates: start: 20210421, end: 20210421
  24. ACETPHEN PREMIX [Concomitant]
     Route: 042
     Dates: start: 20210505, end: 20210505
  25. URSODIOL [Concomitant]
     Active Substance: URSODIOL
     Dosage: 100 TABLET
     Route: 048
     Dates: start: 20210422, end: 20210422
  26. URSODIOL [Concomitant]
     Active Substance: URSODIOL
     Route: 048
     Dates: start: 20210423, end: 20210428
  27. CEFAZOLIN [Concomitant]
     Active Substance: CEFAZOLIN
     Route: 042
     Dates: start: 20210422, end: 20210422
  28. CEFAZOLIN [Concomitant]
     Active Substance: CEFAZOLIN
     Route: 042
     Dates: start: 20210423, end: 20210423
  29. CEFAZOLIN [Concomitant]
     Active Substance: CEFAZOLIN
     Route: 042
     Dates: start: 20210505, end: 20210505
  30. CEFTAZIDIME [Concomitant]
     Active Substance: CEFTAZIDIME
     Route: 042
     Dates: start: 20210422, end: 20210422
  31. CEFTAZIDIME [Concomitant]
     Active Substance: CEFTAZIDIME
     Route: 042
     Dates: start: 20210423, end: 20210423
  32. CEFTAZIDIME [Concomitant]
     Active Substance: CEFTAZIDIME
     Route: 042
     Dates: start: 20210505, end: 20210505
  33. METOCLOPRAMIDE HYDROCHLORIDE [Concomitant]
     Active Substance: METOCLOPRAMIDE HYDROCHLORIDE
     Route: 042
     Dates: start: 20210423, end: 20210423
  34. PENIRAMIN [Concomitant]
     Route: 042
     Dates: start: 20210423, end: 20210423
  35. PENIRAMIN [Concomitant]
     Route: 042
     Dates: start: 20210428, end: 20210428
  36. METOCLOPRAMIDE HYDROCHLORIDE [Concomitant]
     Active Substance: METOCLOPRAMIDE HYDROCHLORIDE
     Route: 048
     Dates: start: 20210426, end: 20210528
  37. NEULAPEG [Concomitant]
     Route: 058
     Dates: start: 20210424, end: 20210424
  38. PHAZYME 95 [Concomitant]
     Route: 048
     Dates: start: 20210424, end: 20210517
  39. DEXAMETHASONE [Concomitant]
     Active Substance: DEXAMETHASONE
     Route: 042
     Dates: start: 20210428, end: 20210428
  40. TYLENOL [Concomitant]
     Active Substance: ACETAMINOPHEN
     Route: 048
     Dates: start: 20210428, end: 20210428
  41. PLASMA SOLUTION A [Concomitant]
     Route: 042
     Dates: start: 20210505, end: 20210505
  42. PREDNISOLONE [Concomitant]
     Active Substance: PREDNISOLONE
     Route: 048
     Dates: start: 20210415, end: 20210420
  43. ULTRACET [Concomitant]
     Active Substance: ACETAMINOPHEN\TRAMADOL HYDROCHLORIDE
     Dosage: 1 TABLET
     Route: 048
     Dates: start: 20210413, end: 20210515

REACTIONS (3)
  - Aspartate aminotransferase increased [Recovered/Resolved]
  - Alanine aminotransferase increased [Recovered/Resolved]
  - Cytokine release syndrome [Recovered/Resolved]

NARRATIVE: CASE EVENT DATE: 20210422
